FAERS Safety Report 17377012 (Version 1)
Quarter: 2020Q1

REPORT INFORMATION
  Report Type: Spontaneous
  Country: US (occurrence: US)
  Receive Date: 20200205
  Receipt Date: 20200205
  Transmission Date: 20200409
  Serious: Yes (Disabling)
  Sender: FDA-Public Use
  Company Number: None

PATIENT
  Age: 33 Year
  Sex: Female
  Weight: 78.75 kg

DRUGS (1)
  1. NORETHINDRONE 0.35 MG [Suspect]
     Active Substance: NORETHINDRONE
     Indication: MENSTRUATION IRREGULAR
     Dosage: ?          QUANTITY:1 TABLET(S);?
     Route: 048

REACTIONS (2)
  - Uterine leiomyoma [None]
  - Haemorrhagic ovarian cyst [None]

NARRATIVE: CASE EVENT DATE: 20200110
